FAERS Safety Report 8352822-2 (Version None)
Quarter: 2012Q2

REPORT INFORMATION
  Report Type: 
  Country: None (occurrence: None)
  Receive Date: 20120509
  Receipt Date: 20120426
  Transmission Date: 20120825
  Serious: Yes (Other)
  Sender: FDA-Public Use
  Company Number: 2012037827

PATIENT
  Age: 1 Month
  Sex: Female

DRUGS (2)
  1. FRAGMIN [Suspect]
     Indication: DEEP VEIN THROMBOSIS
     Dosage: 0.26 ML, 2X/DAY
     Dates: start: 20120101
  2. FRAGMIN [Suspect]
     Indication: THROMBOSIS
     Dosage: 0.26 ML, 2X/DAY
     Dates: start: 20120101

REACTIONS (14)
  - OFF LABEL USE [None]
  - CONTUSION [None]
  - RESTLESSNESS [None]
  - MOVEMENT DISORDER [None]
  - FEELING HOT [None]
  - IRRITABILITY [None]
  - WRONG TECHNIQUE IN DRUG USAGE PROCESS [None]
  - INJECTION SITE REACTION [None]
  - SCAR [None]
  - INJECTION SITE MASS [None]
  - LETHARGY [None]
  - INFECTION [None]
  - SKIN DISORDER [None]
  - OEDEMA PERIPHERAL [None]
